FAERS Safety Report 4921585-2 (Version None)
Quarter: 2006Q1

REPORT INFORMATION
  Report Type: 
  Country: None (occurrence: None)
  Receive Date: 20060223
  Receipt Date: 20060223
  Transmission Date: 20060701
  Serious: Yes (Life-Threatening)
  Sender: FDA-Public Use
  Company Number: None

PATIENT
  Age: 68 Year
  Sex: Male
  Weight: 116.1208 kg

DRUGS (1)
  1. CYPHER DES [Suspect]

REACTIONS (8)
  - CHEST PAIN [None]
  - CORONARY ARTERY OCCLUSION [None]
  - DEVICE FAILURE [None]
  - ELECTROCARDIOGRAM T WAVE INVERSION [None]
  - MYOCARDIAL ISCHAEMIA [None]
  - PROCEDURAL COMPLICATION [None]
  - SINUS BRADYCARDIA [None]
  - THROMBOSIS IN DEVICE [None]
